FAERS Safety Report 17508290 (Version 1)
Quarter: 2020Q1

REPORT INFORMATION
  Report Type: Spontaneous
  Country: AT (occurrence: AT)
  Receive Date: 20200306
  Receipt Date: 20200306
  Transmission Date: 20200409
  Serious: Yes (Other)
  Sender: FDA-Public Use
  Company Number: AT-HORIZON-PRO-0049-2020

PATIENT
  Age: 23 Year
  Sex: Female

DRUGS (10)
  1. RITUXIMAB. [Suspect]
     Active Substance: RITUXIMAB
     Indication: RENAL TRANSPLANT
  2. RATIOGRASTIM [Concomitant]
     Active Substance: FILGRASTIM
     Dosage: AS NEEDED
  3. ENVARSUS XR [Suspect]
     Active Substance: TACROLIMUS
     Indication: RENAL TRANSPLANT
     Route: 048
  4. CYSTADROPS [Concomitant]
     Active Substance: CYSTEAMINE HYDROCHLORIDE
  5. PROCYSBI [Suspect]
     Active Substance: CYSTEAMINE BITARTRATE
     Indication: CYSTINOSIS
     Dosage: 8DF TWICE DAILY; DOSE REDUCED TO 4DF TWICE DAILY
     Route: 048
  6. THYREX [Concomitant]
     Active Substance: LEVOTHYROXINE SODIUM
     Dosage: 1DF DAILY
  7. ARANESP [Concomitant]
     Active Substance: DARBEPOETIN ALFA
     Dosage: ONCE A WEEK
  8. APREDNISOLON [Suspect]
     Active Substance: PREDNISOLONE
     Indication: RENAL TRANSPLANT
     Dosage: 5MG DAILY
     Route: 048
  9. MYCOPHENOLATE MOFETIL. [Suspect]
     Active Substance: MYCOPHENOLATE MOFETIL
     Indication: RENAL TRANSPLANT
  10. PANTOLOC [Concomitant]
     Active Substance: PANTOPRAZOLE SODIUM
     Dosage: AS NEEDED

REACTIONS (2)
  - Gingivitis ulcerative [Unknown]
  - Leukopenia [Not Recovered/Not Resolved]
